FAERS Safety Report 23451999 (Version 8)
Quarter: 2024Q2

REPORT INFORMATION
  Report Type: Report from Study
  Country: CA (occurrence: CA)
  Receive Date: 20240129
  Receipt Date: 20240617
  Transmission Date: 20240716
  Serious: Yes (Hospitalization, Other)
  Sender: FDA-Public Use
  Company Number: CA-GLAXOSMITHKLINE-CA2023AMR051232

PATIENT

DRUGS (7)
  1. MEPOLIZUMAB [Suspect]
     Active Substance: MEPOLIZUMAB
     Indication: Asthma
     Dosage: 100 MG, Q4W
     Route: 058
     Dates: start: 20191206
  2. MEPOLIZUMAB [Suspect]
     Active Substance: MEPOLIZUMAB
     Indication: Asthma
     Dosage: 100 MG, Q4W
     Route: 058
     Dates: start: 20191206
  3. MEPOLIZUMAB [Suspect]
     Active Substance: MEPOLIZUMAB
     Indication: Asthma
     Dosage: 100 MG, Q4W
     Route: 058
     Dates: start: 20191206
  4. MEPOLIZUMAB [Suspect]
     Active Substance: MEPOLIZUMAB
     Indication: Asthma
     Dosage: 100 MG, Q4W
     Route: 058
     Dates: start: 20191206
  5. MEPOLIZUMAB [Suspect]
     Active Substance: MEPOLIZUMAB
     Indication: Asthma
     Dosage: 100 MG, Q4W
     Route: 058
     Dates: start: 20191206
  6. MEPOLIZUMAB [Suspect]
     Active Substance: MEPOLIZUMAB
     Indication: Asthma
     Dosage: 100 MG, Q4W
     Route: 058
     Dates: start: 20191206
  7. PREGABALIN [Concomitant]
     Active Substance: PREGABALIN
     Indication: Product used for unknown indication
     Dosage: 50 MG, BID
     Route: 048
     Dates: start: 20230510

REACTIONS (33)
  - Headache [Not Recovered/Not Resolved]
  - Syncope [Unknown]
  - Transient ischaemic attack [Unknown]
  - Arrhythmia [Unknown]
  - Glaucoma [Unknown]
  - Blood pressure increased [Unknown]
  - Chest pain [Unknown]
  - Neck pain [Unknown]
  - Giant cell arteritis [Unknown]
  - Thermal burn [Unknown]
  - Scar [Unknown]
  - Heart rate increased [Unknown]
  - Blood pressure diastolic increased [Unknown]
  - Blood pressure systolic increased [Unknown]
  - Fatigue [Unknown]
  - Stress [Unknown]
  - Hypersensitivity [Unknown]
  - Eczema [Not Recovered/Not Resolved]
  - Phototherapy [Not Recovered/Not Resolved]
  - Haemoptysis [Unknown]
  - Sputum discoloured [Unknown]
  - Epistaxis [Unknown]
  - Fall [Unknown]
  - Musculoskeletal chest pain [Unknown]
  - Malaise [Unknown]
  - Infection [Unknown]
  - Productive cough [Recovered/Resolved]
  - Dizziness [Unknown]
  - Coronavirus infection [Recovered/Resolved]
  - Injection site pain [Unknown]
  - Ill-defined disorder [Unknown]
  - Rhinorrhoea [Unknown]
  - Cough [Unknown]

NARRATIVE: CASE EVENT DATE: 20230325
